FAERS Safety Report 6945519-4 (Version None)
Quarter: 2010Q3

REPORT INFORMATION
  Report Type: 
  Country: None (occurrence: None)
  Receive Date: 20100827
  Receipt Date: 20100823
  Transmission Date: 20110219
  Serious: Yes (Death)
  Sender: FDA-Public Use
  Company Number: TN-SANOFI-AVENTIS-2010SA043659

PATIENT
  Age: 63 Year
  Sex: Male

DRUGS (6)
  1. CLOPIDOGREL BISULFATE [Suspect]
     Route: 048
  2. INSULIN [Concomitant]
     Indication: DIABETES MELLITUS
  3. CAPTOPRIL [Concomitant]
  4. MOLSIDOMINE [Concomitant]
  5. SIMVASTATIN [Concomitant]
  6. ASPIRIN [Concomitant]

REACTIONS (4)
  - HEPATIC FAILURE [None]
  - JAUNDICE [None]
  - LIVER INJURY [None]
  - THROMBOCYTOPENIA [None]
